FAERS Safety Report 4296005-4 (Version None)
Quarter: 2004Q1

REPORT INFORMATION
  Report Type: 
  Country: None (occurrence: None)
  Receive Date: 20040212
  Receipt Date: 20040130
  Transmission Date: 20041129
  Serious: No
  Sender: FDA-Public Use
  Company Number: 2004AP00496

PATIENT
  Age: 45 Year
  Sex: Female
  Weight: 52 kg

DRUGS (4)
  1. XYLOCAINE [Suspect]
     Indication: ANAESTHESIA
  2. EPINEPHRINE [Suspect]
  3. BUSCOPAN [Suspect]
  4. COLIOPAN [Suspect]

REACTIONS (2)
  - ANAESTHETIC COMPLICATION [None]
  - SHOCK [None]
